FAERS Safety Report 5622581-2 (Version None)
Quarter: 2008Q1

REPORT INFORMATION
  Report Type: 
  Country: None (occurrence: None)
  Receive Date: 20080114
  Receipt Date: 20070312
  Transmission Date: 20080703
  Serious: Yes (Life-Threatening, Hospitalization)
  Sender: FDA-Public Use
  Company Number: A03200502511

PATIENT
  Age: 64 Year
  Sex: Male
  Weight: 102.49 kg

DRUGS (6)
  1. PLAVIX [Suspect]
     Indication: ANGINA UNSTABLE
     Dosage: 75 MG QD - ORAL
     Route: 048
     Dates: start: 20030117, end: 20050721
  2. PLAVIX [Suspect]
     Indication: STENT PLACEMENT
     Dosage: 75 MG QD - ORAL
     Route: 048
     Dates: start: 20030117, end: 20050721
  3. ATENOLOL [Concomitant]
  4. LISINOPRIL [Concomitant]
  5. FUROSEMIDE [Concomitant]
  6. ACETYLSALICYLIC ACID SRT [Concomitant]

REACTIONS (2)
  - FULL BLOOD COUNT DECREASED [None]
  - SMALL INTESTINAL HAEMORRHAGE [None]
